FAERS Safety Report 4406782-7 (Version None)
Quarter: 2004Q3

REPORT INFORMATION
  Report Type: 
  Country: None (occurrence: None)
  Receive Date: 20040723
  Receipt Date: 19990929
  Transmission Date: 20050211
  Serious: Yes (Other)
  Sender: FDA-Public Use
  Company Number: AU-MERCK-0404AUS00056

PATIENT
  Age: 61 Year
  Sex: Female

DRUGS (3)
  1. FOSAMAX [Suspect]
     Indication: OSTEOPOROSIS
     Route: 048
     Dates: start: 19990716, end: 19990930
  2. CALCIUM CARBONATE [Suspect]
     Route: 048
     Dates: start: 19990716
  3. ESTRADIOL [Concomitant]
     Route: 065
     Dates: start: 19990805

REACTIONS (3)
  - EPISCLERITIS [None]
  - EYE PAIN [None]
  - EYE SWELLING [None]
